FAERS Safety Report 14994025 (Version 2)
Quarter: 2018Q2

REPORT INFORMATION
  Report Type: Report from Study
  Country: US (occurrence: US)
  Receive Date: 20180611
  Receipt Date: 20180621
  Transmission Date: 20180711
  Serious: Yes (Hospitalization, Other)
  Sender: FDA-Public Use
  Company Number: US-GILEAD-2018-0342965

PATIENT
  Age: 68 Year
  Sex: Female
  Weight: 57.14 kg

DRUGS (23)
  1. DEXTROMETHORPHAN-GUAIFENESIN [Concomitant]
     Active Substance: DEXTROMETHORPHAN\GUAIFENESIN
  2. FLUOCINOLONE [Concomitant]
     Active Substance: FLUOCINOLONE
  3. LIALDA [Concomitant]
     Active Substance: MESALAMINE
  4. TYVASO [Concomitant]
     Active Substance: TREPROSTINIL
  5. CLOBETASOL [Concomitant]
     Active Substance: CLOBETASOL
  6. THEOPHYLLINE [Concomitant]
     Active Substance: THEOPHYLLINE ANHYDROUS
  7. OXYGEN. [Concomitant]
     Active Substance: OXYGEN
  8. TIOTROPIUM [Concomitant]
     Active Substance: TIOTROPIUM
  9. BROVANA [Concomitant]
     Active Substance: ARFORMOTEROL TARTRATE
  10. AMBRISENTAN [Suspect]
     Active Substance: AMBRISENTAN
     Indication: PULMONARY HYPERTENSION
     Dosage: 10 MG, QD
     Route: 065
     Dates: start: 20101022
  11. ELIQUIS [Concomitant]
     Active Substance: APIXABAN
  12. ONDANSETRON [Concomitant]
     Active Substance: ONDANSETRON
  13. ASPIRIN                            /00002701/ [Concomitant]
     Active Substance: ASPIRIN
  14. LASIX [Concomitant]
     Active Substance: FUROSEMIDE
  15. AMBRISENTAN [Suspect]
     Active Substance: AMBRISENTAN
     Indication: CHRONIC OBSTRUCTIVE PULMONARY DISEASE
  16. REVATIO [Concomitant]
     Active Substance: SILDENAFIL CITRATE
  17. PREDNISONE. [Concomitant]
     Active Substance: PREDNISONE
  18. POTASSIUM CHLORIDE. [Concomitant]
     Active Substance: POTASSIUM CHLORIDE
  19. BETAMETHASONE DIPROPIONATE. [Concomitant]
     Active Substance: BETAMETHASONE DIPROPIONATE
  20. LEVALBUTEROL                       /01419301/ [Concomitant]
     Active Substance: LEVALBUTEROL
  21. HYDROCORTISONE. [Concomitant]
     Active Substance: HYDROCORTISONE
  22. MONTELUKAST [Concomitant]
     Active Substance: MONTELUKAST SODIUM
  23. PULMICORT TURBUHALER [Concomitant]
     Active Substance: BUDESONIDE

REACTIONS (3)
  - Lung disorder [Unknown]
  - Respiratory distress [Unknown]
  - Combined pulmonary fibrosis and emphysema [Recovered/Resolved]

NARRATIVE: CASE EVENT DATE: 20180509
